FAERS Safety Report 17243479 (Version 1)
Quarter: 2019Q4

REPORT INFORMATION
  Report Type: Spontaneous
  Country: US (occurrence: US)
  Receive Date: 20191212
  Receipt Date: 20191212
  Transmission Date: 20200122
  Serious: Yes (Hospitalization)
  Sender: FDA-Public Use
  Company Number: None

PATIENT
  Age: 71 Year
  Sex: Male

DRUGS (25)
  1. AMITRIPTYLIN [Concomitant]
     Active Substance: AMITRIPTYLINE
  2. ATIVAN [Concomitant]
     Active Substance: LORAZEPAM
  3. PRASUGREL. [Concomitant]
     Active Substance: PRASUGREL
  4. PREDNISONE. [Concomitant]
     Active Substance: PREDNISONE
  5. RAMPRIL [Concomitant]
     Active Substance: RAMIPRIL
  6. ZYRTEC [Concomitant]
     Active Substance: CETIRIZINE HYDROCHLORIDE
  7. ADVAIR HFA [Concomitant]
     Active Substance: FLUTICASONE PROPIONATE\SALMETEROL XINAFOATE
  8. CELEXA [Concomitant]
     Active Substance: CITALOPRAM HYDROBROMIDE
  9. FAMOTIDINE. [Concomitant]
     Active Substance: FAMOTIDINE
  10. LEVOFLOXACIN. [Concomitant]
     Active Substance: LEVOFLOXACIN
  11. POTASSIUM [Concomitant]
     Active Substance: POTASSIUM
  12. VIT B1 [Concomitant]
     Active Substance: THIAMINE HYDROCHLORIDE
  13. ATORVASTATIN [Concomitant]
     Active Substance: ATORVASTATIN
  14. MONTELUKAST [Concomitant]
     Active Substance: MONTELUKAST SODIUM
  15. VALACYCLOVIR [Concomitant]
     Active Substance: VALACYCLOVIR HYDROCHLORIDE
  16. TASIGNA [Suspect]
     Active Substance: NILOTINIB
     Indication: ACUTE LYMPHOCYTIC LEUKAEMIA
     Route: 048
     Dates: start: 20190328
  17. VFEND [Concomitant]
     Active Substance: VORICONAZOLE
  18. PANTOPROZOLE [Concomitant]
  19. ALBUTERNOL [Concomitant]
  20. A-HYDROCORT [Concomitant]
     Active Substance: HYDROCORTISONE SODIUM SUCCINATE
  21. LORAZEPAM. [Concomitant]
     Active Substance: LORAZEPAM
  22. BENZONATE [Concomitant]
     Active Substance: BENZONATATE
  23. METOPROLOL. [Concomitant]
     Active Substance: METOPROLOL
  24. HYDROCO/APAP [Concomitant]
     Active Substance: ACETAMINOPHEN\HYDROCODONE
  25. SPRYCELL [Concomitant]

REACTIONS (2)
  - Nasopharyngitis [None]
  - Influenza like illness [None]

NARRATIVE: CASE EVENT DATE: 20191202
